FAERS Safety Report 26002481 (Version 1)
Quarter: 2025Q4

REPORT INFORMATION
  Report Type: Spontaneous
  Country: US (occurrence: US)
  Receive Date: 20251105
  Receipt Date: 20251105
  Transmission Date: 20260119
  Serious: No
  Sender: ASTELLAS
  Company Number: US-ASTELLAS-2025-AER-059943

PATIENT
  Sex: Female

DRUGS (6)
  1. ZOLBETUXIMAB [Suspect]
     Active Substance: ZOLBETUXIMAB
     Indication: Product used for unknown indication
     Dosage: SECOND CYCLE
     Route: 065
  2. ZOLBETUXIMAB [Suspect]
     Active Substance: ZOLBETUXIMAB
     Dosage: THIRD CYCLE
     Route: 065
  3. ZOLBETUXIMAB [Suspect]
     Active Substance: ZOLBETUXIMAB
     Dosage: FIRST CYCLE
     Route: 065
  4. FLUOROURACIL\LEUCOVORIN CALCIUM\OXALIPLATIN [Suspect]
     Active Substance: FLUOROURACIL\LEUCOVORIN CALCIUM\OXALIPLATIN
     Indication: Product used for unknown indication
     Dosage: SECOND CYCLE
     Route: 065
  5. FLUOROURACIL\LEUCOVORIN CALCIUM\OXALIPLATIN [Suspect]
     Active Substance: FLUOROURACIL\LEUCOVORIN CALCIUM\OXALIPLATIN
     Dosage: THIRD CYCLE
     Route: 065
  6. FLUOROURACIL\LEUCOVORIN CALCIUM\OXALIPLATIN [Suspect]
     Active Substance: FLUOROURACIL\LEUCOVORIN CALCIUM\OXALIPLATIN
     Dosage: FIRST CYCLE
     Route: 065

REACTIONS (3)
  - Infusion related reaction [Unknown]
  - Throat irritation [Unknown]
  - Dysarthria [Unknown]
